FAERS Safety Report 20995973 (Version 1)
Quarter: 2022Q2

REPORT INFORMATION
  Report Type: Spontaneous
  Country: US (occurrence: US)
  Receive Date: 20220623
  Receipt Date: 20220623
  Transmission Date: 20220721
  Serious: No
  Sender: FDA-Public Use
  Company Number: US-Accord-254559

PATIENT
  Sex: Female

DRUGS (1)
  1. CLONAZEPAM [Suspect]
     Active Substance: CLONAZEPAM
     Indication: Anxiety
     Dosage: DOSE: 0.5 MG/ TWICE A DAY
     Route: 048

REACTIONS (5)
  - Gait disturbance [Unknown]
  - Speech disorder [Unknown]
  - Fatigue [Unknown]
  - Sedation [Unknown]
  - Memory impairment [Unknown]
